FAERS Safety Report 13366309 (Version 2)
Quarter: 2017Q1

REPORT INFORMATION
  Report Type: Spontaneous
  Country: US (occurrence: US)
  Receive Date: 20170323
  Receipt Date: 20170328
  Transmission Date: 20170429
  Serious: Yes (Other)
  Sender: FDA-Public Use
  Company Number: US-ELI_LILLY_AND_COMPANY-US201703004341

PATIENT
  Age: 47 Year
  Sex: Female

DRUGS (2)
  1. TAXOTERE [Suspect]
     Active Substance: DOCETAXEL
     Indication: NON-SMALL CELL LUNG CANCER
     Dosage: UNK, UNKNOWN
     Route: 065
     Dates: start: 20160418
  2. CYRAMZA [Suspect]
     Active Substance: RAMUCIRUMAB
     Indication: NON-SMALL CELL LUNG CANCER
     Dosage: UNK, UNKNOWN
     Route: 065
     Dates: start: 20160418

REACTIONS (12)
  - Hyporesponsive to stimuli [Unknown]
  - Fluid intake reduced [Unknown]
  - Dehydration [Unknown]
  - Thrombocytopenia [Unknown]
  - Insomnia [Unknown]
  - Tachycardia [Unknown]
  - Lethargy [Unknown]
  - Neutropenia [Unknown]
  - Fatigue [Unknown]
  - Paraesthesia [Unknown]
  - Hypoxia [Unknown]
  - Hypophagia [Unknown]

NARRATIVE: CASE EVENT DATE: 20160428
